FAERS Safety Report 11113783 (Version 2)
Quarter: 2015Q2

REPORT INFORMATION
  Report Type: Report from Study
  Country: US (occurrence: US)
  Receive Date: 20150514
  Receipt Date: 20150619
  Transmission Date: 20150821
  Serious: Yes (Hospitalization)
  Sender: FDA-Public Use
  Company Number: US-EXELIXIS-CABO-15005315

PATIENT
  Age: 31 Year
  Sex: Male

DRUGS (2)
  1. CABOZANTINIB [Suspect]
     Active Substance: CABOZANTINIB
     Dosage: UNK
  2. CABOZANTINIB [Suspect]
     Active Substance: CABOZANTINIB
     Indication: THYROID CANCER
     Dosage: 140 MG, QD
     Route: 048
     Dates: start: 20150311, end: 20150505

REACTIONS (6)
  - Diarrhoea [Recovering/Resolving]
  - Pain [Unknown]
  - Dysphonia [Unknown]
  - Stomatitis [Recovering/Resolving]
  - Muscle spasms [Unknown]
  - Dyspnoea [Unknown]

NARRATIVE: CASE EVENT DATE: 20150506
